FAERS Safety Report 7507934-X (Version None)
Quarter: 2011Q2

REPORT INFORMATION
  Report Type: 
  Country: None (occurrence: None)
  Receive Date: 20110519
  Receipt Date: 20110502
  Transmission Date: 20111010
  Serious: Yes (Hospitalization)
  Sender: FDA-Public Use
  Company Number: JHP201100159

PATIENT
  Sex: Male

DRUGS (1)
  1. EPINEPHRINE [Suspect]
     Dosage: INJECTION
     Dates: start: 20110101, end: 20110101

REACTIONS (2)
  - NO ADVERSE EVENT [None]
  - WRONG DRUG ADMINISTERED [None]
